FAERS Safety Report 13862012 (Version 1)
Quarter: 2017Q3

REPORT INFORMATION
  Report Type: Report from Study
  Country: None (occurrence: US)
  Receive Date: 20170812
  Receipt Date: 20170812
  Transmission Date: 20171127
  Serious: Yes (Hospitalization)
  Sender: FDA-Public Use
  Company Number: US-ABBVIE-17P-163-2064145-00

PATIENT
  Age: 42 Year
  Sex: Female
  Weight: 70.37 kg

DRUGS (1)
  1. LUPRON DEPOT [Suspect]
     Active Substance: LEUPROLIDE ACETATE
     Indication: ENDOMETRIOSIS
     Route: 030
     Dates: start: 201705, end: 20170620

REACTIONS (7)
  - Gait disturbance [Not Recovered/Not Resolved]
  - Stress urinary incontinence [Recovering/Resolving]
  - Asthenia [Not Recovered/Not Resolved]
  - Urinary tract infection [Recovering/Resolving]
  - Somnolence [Not Recovered/Not Resolved]
  - Urinary incontinence [Recovered/Resolved]
  - Fatigue [Not Recovered/Not Resolved]

NARRATIVE: CASE EVENT DATE: 20170726
